FAERS Safety Report 14927263 (Version 9)
Quarter: 2019Q3

REPORT INFORMATION
  Report Type: Spontaneous
  Country: US (occurrence: US)
  Receive Date: 20180523
  Receipt Date: 20190830
  Transmission Date: 20191004
  Serious: Yes (Hospitalization, Other)
  Sender: FDA-Public Use
  Company Number: US-PFIZER INC-2018208963

PATIENT
  Age: 58 Year
  Sex: Female
  Weight: 107 kg

DRUGS (5)
  1. LYRICA [Suspect]
     Active Substance: PREGABALIN
     Indication: NEURALGIA
     Dosage: 50 MG, 3X/DAY
     Route: 048
     Dates: start: 20180430, end: 2018
  2. LYRICA [Suspect]
     Active Substance: PREGABALIN
     Indication: NEURITIS
     Dosage: UNK
     Route: 048
     Dates: start: 2018, end: 2018
  3. LYRICA [Suspect]
     Active Substance: PREGABALIN
     Indication: FIBROMYALGIA
     Dosage: 50 MG, 3X/DAY
     Route: 048
     Dates: start: 2018
  4. LYRICA [Suspect]
     Active Substance: PREGABALIN
     Indication: PAIN IN EXTREMITY
  5. LYRICA [Suspect]
     Active Substance: PREGABALIN
     Indication: NEUROPATHY PERIPHERAL
     Dosage: 50 MG, 3X/DAY
     Route: 048
     Dates: start: 20180427, end: 201804

REACTIONS (14)
  - Fall [Unknown]
  - Loss of consciousness [Unknown]
  - Swelling face [Unknown]
  - Weight decreased [Unknown]
  - Eye disorder [Unknown]
  - Neuropathy peripheral [Unknown]
  - Syncope [Not Recovered/Not Resolved]
  - Atrial fibrillation [Unknown]
  - Facial bones fracture [Unknown]
  - Product dose omission [Unknown]
  - Epistaxis [Unknown]
  - Cough [Unknown]
  - Gait disturbance [Unknown]
  - Oropharyngeal pain [Unknown]

NARRATIVE: CASE EVENT DATE: 20190606
